APPROVED DRUG PRODUCT: BACLOFEN
Active Ingredient: BACLOFEN
Strength: 0.5MG/ML
Dosage Form/Route: INJECTABLE;INTRATHECAL
Application: A217324 | Product #001 | TE Code: AP
Applicant: RUBICON RESEARCH LTD
Approved: Feb 22, 2023 | RLD: No | RS: No | Type: RX